FAERS Safety Report 13011466 (Version 1)
Quarter: 2016Q4

REPORT INFORMATION
  Report Type: Spontaneous
  Country: US (occurrence: US)
  Receive Date: 20161209
  Receipt Date: 20161209
  Transmission Date: 20170207
  Serious: No
  Sender: FDA-Public Use
  Company Number: US-PAR PHARMACEUTICAL, INC-2016SCPR015121

PATIENT

DRUGS (5)
  1. IMIPRAMINE HCL [Suspect]
     Active Substance: IMIPRAMINE HYDROCHLORIDE
     Indication: BLADDER DISORDER
     Dosage: 3 DF, OD
     Route: 048
     Dates: start: 201512, end: 20160119
  2. REPAGLINIDE. [Concomitant]
     Active Substance: REPAGLINIDE
     Indication: DIABETES MELLITUS
     Dosage: 2 DF, TID
     Route: 048
  3. ZYRTEC [Concomitant]
     Active Substance: CETIRIZINE HYDROCHLORIDE
     Indication: HYPERSENSITIVITY
     Dosage: 1 DF, PRN
     Route: 048
  4. METFORMIN [Concomitant]
     Active Substance: METFORMIN HYDROCHLORIDE
     Indication: DIABETES MELLITUS
     Dosage: 4 DF, DAILY
     Route: 048
  5. OMEPRAZOLE MAGNESIUM. [Concomitant]
     Active Substance: OMEPRAZOLE MAGNESIUM
     Indication: DYSPEPSIA
     Dosage: 1 DF, UNKNOWN
     Route: 048

REACTIONS (7)
  - Sensory disturbance [Unknown]
  - Hypoaesthesia oral [Unknown]
  - Product use issue [Unknown]
  - Burning sensation mucosal [Unknown]
  - Mouth swelling [Unknown]
  - Noninfective gingivitis [Unknown]
  - Gingival pain [Not Recovered/Not Resolved]

NARRATIVE: CASE EVENT DATE: 201512
